FAERS Safety Report 4266984-X (Version None)
Quarter: 2004Q1

REPORT INFORMATION
  Report Type: 
  Country: None (occurrence: None)
  Receive Date: 20040108
  Receipt Date: 20030812
  Transmission Date: 20041129
  Serious: No
  Sender: FDA-Public Use
  Company Number: US-BRISTOL-MYERS SQUIBB COMPANY-12353017

PATIENT
  Age: 30 Year
  Sex: Female
  Weight: 91 kg

DRUGS (2)
  1. NADOLOL [Suspect]
     Indication: MIGRAINE PROPHYLAXIS
     Route: 048
     Dates: start: 20010101, end: 20030601
  2. ELAVIL [Concomitant]
     Indication: MIGRAINE PROPHYLAXIS
     Dates: start: 20010101, end: 20030601

REACTIONS (2)
  - HYPERSENSITIVITY [None]
  - MIGRAINE [None]
